FAERS Safety Report 9300979 (Version 1)
Quarter: 2013Q2

REPORT INFORMATION
  Report Type: Spontaneous
  Country: US (occurrence: US)
  Receive Date: 20130521
  Receipt Date: 20130521
  Transmission Date: 20140414
  Serious: No
  Sender: FDA-Public Use
  Company Number: US-PFIZER INC-2013151518

PATIENT
  Age: 92 Year
  Sex: Female
  Weight: 46.71 kg

DRUGS (8)
  1. LEVOXYL [Suspect]
     Indication: THYROID HORMONE REPLACEMENT THERAPY
     Dosage: 75 UG, 1X/DAY
     Route: 048
  2. ASPIRIN [Concomitant]
     Dosage: UNK
  3. SINGULAIR [Concomitant]
     Dosage: UNK
  4. PROAIR HFA [Concomitant]
     Indication: ASTHMA
     Dosage: UNK
  5. XANAX [Concomitant]
     Dosage: UNK
  6. TYLENOL [Concomitant]
     Dosage: UNK
  7. VERELAN [Concomitant]
     Dosage: UNK
  8. TRAVATAN [Concomitant]
     Dosage: UNK

REACTIONS (7)
  - Abdominal discomfort [Unknown]
  - Vertigo [Unknown]
  - Thinking abnormal [Unknown]
  - Vision blurred [Unknown]
  - Balance disorder [Unknown]
  - Dysstasia [Unknown]
  - Blood test abnormal [Unknown]
